FAERS Safety Report 9808623 (Version 1)
Quarter: 2014Q1

REPORT INFORMATION
  Report Type: Spontaneous
  Country: US (occurrence: US)
  Receive Date: 20140110
  Receipt Date: 20140110
  Transmission Date: 20141002
  Serious: Yes (Other)
  Sender: FDA-Public Use
  Company Number: US-BRISTOL-MYERS SQUIBB COMPANY-19573732

PATIENT
  Age: 21 Year
  Sex: Female
  Weight: 63.9 kg

DRUGS (6)
  1. BELATACEPT [Suspect]
     Dosage: STRENGTH-250MG
     Route: 042
     Dates: start: 20121207
  2. CALCIUM CARBONATE [Concomitant]
     Dosage: CONTINUE
     Dates: start: 20121209
  3. ZANTAC [Concomitant]
     Dosage: CONTINUE
     Dates: start: 20120531
  4. ZOFRAN [Concomitant]
     Dosage: CONTINUE
     Dates: start: 20120418
  5. VITAMIN D3 [Concomitant]
     Dosage: 1DF: 2000IU
     Dates: start: 20130418
  6. PROGRAF [Concomitant]

REACTIONS (4)
  - Hypersensitivity [Unknown]
  - Bacterial infection [Unknown]
  - Fungal infection [Unknown]
  - Off label use [Unknown]
